FAERS Safety Report 8022967-5 (Version None)
Quarter: 2012Q1

REPORT INFORMATION
  Report Type: 
  Country: None (occurrence: None)
  Receive Date: 20120104
  Receipt Date: 20111229
  Transmission Date: 20120608
  Serious: Yes (Hospitalization)
  Sender: FDA-Public Use
  Company Number: DE-ABBOTT-12P-062-0888346-00

PATIENT
  Age: 47 Year
  Sex: Male
  Weight: 81 kg

DRUGS (4)
  1. TRUVADA [Concomitant]
     Indication: PRODUCT USED FOR UNKNOWN INDICATION
     Dosage: 200 MG/245 MG
     Route: 048
     Dates: start: 20091118
  2. PANTOPRAZOLE SODIUM [Concomitant]
     Indication: GASTRIC DISORDER
     Route: 048
     Dates: start: 20111208, end: 20111210
  3. PANTOPRAZOLE SODIUM [Concomitant]
     Indication: PROPHYLAXIS
  4. KALETRA [Suspect]
     Indication: HIV INFECTION
     Dates: start: 20091118

REACTIONS (2)
  - SCAR [None]
  - ANAL FISTULA [None]
